FAERS Safety Report 7172759-4 (Version None)
Quarter: 2010Q4

REPORT INFORMATION
  Report Type: 
  Country: None (occurrence: None)
  Receive Date: 20101219
  Receipt Date: 20100512
  Transmission Date: 20110411
  Serious: No
  Sender: FDA-Public Use
  Company Number: US-AMGEN-KDL392644

PATIENT

DRUGS (12)
  1. ENBREL [Suspect]
     Indication: PSORIATIC ARTHROPATHY
     Dosage: 50 MG, QWK
     Route: 058
     Dates: start: 20020401
  2. ENBREL [Suspect]
     Indication: PSORIASIS
  3. METHOTREXATE [Concomitant]
  4. LISINOPRIL [Concomitant]
  5. HYDROCHLOROTHIAZIDE [Concomitant]
  6. ACETYLSALICYLIC ACID [Concomitant]
  7. HYDROXYZINE [Concomitant]
  8. CLOPIDOGREL BISULFATE [Concomitant]
  9. FINASTERIDE [Concomitant]
  10. UNSPECIFIED MEDICATION [Concomitant]
  11. TOPROL-XL [Concomitant]
  12. TAMSULOSIN HCL [Concomitant]

REACTIONS (8)
  - CHILLS [None]
  - IMPAIRED HEALING [None]
  - LIVER FUNCTION TEST ABNORMAL [None]
  - MYALGIA [None]
  - NASOPHARYNGITIS [None]
  - PSORIASIS [None]
  - PSORIATIC ARTHROPATHY [None]
  - WEIGHT INCREASED [None]
